FAERS Safety Report 13858738 (Version 1)
Quarter: 2017Q3

REPORT INFORMATION
  Report Type: Spontaneous
  Country: GB (occurrence: GB)
  Receive Date: 20170811
  Receipt Date: 20170811
  Transmission Date: 20171127
  Serious: Yes (Other)
  Sender: FDA-Public Use
  Company Number: GB-GILEAD-2017-0287157

PATIENT
  Age: 45 Year
  Sex: Female
  Weight: 63.5 kg

DRUGS (4)
  1. PREZISTA [Suspect]
     Active Substance: DARUNAVIR ETHANOLATE
     Indication: HIV INFECTION
     Dosage: 1
     Route: 048
  2. RITONAVIR. [Suspect]
     Active Substance: RITONAVIR
     Indication: HIV INFECTION
     Dosage: UNK
     Route: 048
     Dates: start: 20160318
  3. TRUVADA [Suspect]
     Active Substance: EMTRICITABINE\TENOFOVIR DISOPROXIL FUMARATE
     Indication: HIV INFECTION
     Dosage: UNK
     Route: 048
     Dates: start: 20160318
  4. ESMYA [Concomitant]
     Active Substance: ULIPRISTAL ACETATE

REACTIONS (3)
  - Menorrhagia [Unknown]
  - Skin sensitisation [Not Recovered/Not Resolved]
  - Rash pustular [Not Recovered/Not Resolved]

NARRATIVE: CASE EVENT DATE: 20160318
